FAERS Safety Report 7210337-9 (Version None)
Quarter: 2011Q1

REPORT INFORMATION
  Report Type: 
  Country: None (occurrence: None)
  Receive Date: 20110105
  Receipt Date: 20101231
  Transmission Date: 20110831
  Serious: Yes (Other)
  Sender: FDA-Public Use
  Company Number: FR-B.I. PHARMACEUTICALS,INC./RIDGEFIELD-2010-FF-01047FF

PATIENT
  Sex: Female

DRUGS (5)
  1. RHINADVIL [Suspect]
     Indication: BRONCHITIS
     Route: 048
     Dates: start: 20101118, end: 20101121
  2. DOLIPRANE [Suspect]
     Indication: BRONCHITIS
     Dosage: 3 G
     Route: 048
     Dates: start: 20101118, end: 20101123
  3. NEO-CODION [Suspect]
     Indication: BRONCHITIS
     Route: 048
     Dates: start: 20101118, end: 20101122
  4. SPIRIVA [Suspect]
     Indication: BRONCHITIS
     Dosage: 18 MCG
     Route: 055
     Dates: start: 20101118, end: 20101122
  5. AUGMENTIN '125' [Suspect]
     Indication: BRONCHITIS
     Dosage: 2 G
     Route: 048
     Dates: start: 20101118, end: 20101122

REACTIONS (4)
  - LEUKOPENIA [None]
  - AGRANULOCYTOSIS [None]
  - THROMBOCYTOPENIA [None]
  - MONOCYTOPENIA [None]
